FAERS Safety Report 9373204 (Version 7)
Quarter: 2015Q1

REPORT INFORMATION
  Report Type: Spontaneous
  Country: US (occurrence: US)
  Receive Date: 20130627
  Receipt Date: 20150323
  Transmission Date: 20150721
  Serious: Yes (Death, Hospitalization, Disabling, Other)
  Sender: FDA-Public Use
  Company Number: US-GLAXOSMITHKLINE-A0757470A

PATIENT
  Sex: Male
  Weight: 159 kg

DRUGS (4)
  1. ZESTRIL [Concomitant]
     Active Substance: LISINOPRIL
  2. GLUCOPHAGE [Concomitant]
     Active Substance: METFORMIN HYDROCHLORIDE
  3. AMARYL [Concomitant]
     Active Substance: GLIMEPIRIDE
  4. AVANDIA [Suspect]
     Active Substance: ROSIGLITAZONE MALEATE
     Indication: TYPE 2 DIABETES MELLITUS
     Dosage: 8 MG, QD
     Route: 048
     Dates: start: 199912, end: 20070427

REACTIONS (14)
  - Dementia [Unknown]
  - Intracardiac thrombus [Unknown]
  - Coronary artery disease [Fatal]
  - Ventricular tachycardia [Unknown]
  - Diabetes mellitus [Unknown]
  - Cardiac failure congestive [Unknown]
  - Congestive cardiomyopathy [Unknown]
  - Upper limb fracture [Unknown]
  - Pleural effusion [Unknown]
  - Blood pressure abnormal [Unknown]
  - Presyncope [Unknown]
  - Amnesia [Unknown]
  - Myocardial infarction [Unknown]
  - Atrial fibrillation [Unknown]
